FAERS Safety Report 24600832 (Version 1)
Quarter: 2024Q4

REPORT INFORMATION
  Report Type: Spontaneous
  Country: MY (occurrence: MY)
  Receive Date: 20241110
  Receipt Date: 20241110
  Transmission Date: 20250115
  Serious: Yes (Other)
  Sender: ALEXION PHARMACEUTICALS
  Company Number: MY-AstraZeneca-CH-00722556A

PATIENT
  Age: 80 Year

DRUGS (6)
  1. BRILINTA [Suspect]
     Active Substance: TICAGRELOR
     Indication: Transient ischaemic attack
     Dosage: 180 MILLIGRAM, SINGLE
  2. BRILINTA [Suspect]
     Active Substance: TICAGRELOR
     Dosage: 180 MILLIGRAM, SINGLE
  3. BRILINTA [Suspect]
     Active Substance: TICAGRELOR
     Dosage: 180 MILLIGRAM, SINGLE
  4. BRILINTA [Suspect]
     Active Substance: TICAGRELOR
     Dosage: 180 MILLIGRAM, SINGLE
  5. ASPIRIN [Concomitant]
     Active Substance: ASPIRIN
     Indication: Transient ischaemic attack
     Dosage: 300 MILLIGRAM
  6. ASPIRIN [Concomitant]
     Active Substance: ASPIRIN
     Dosage: 300 MILLIGRAM
     Route: 065

REACTIONS (2)
  - Drug ineffective [Recovering/Resolving]
  - Cerebrovascular accident [Recovering/Resolving]
